FAERS Safety Report 4738547-0 (Version None)
Quarter: 2005Q3

REPORT INFORMATION
  Report Type: 
  Country: None (occurrence: None)
  Receive Date: 20050803
  Receipt Date: 20050721
  Transmission Date: 20060218
  Serious: Yes (Hospitalization)
  Sender: FDA-Public Use
  Company Number: S05-FRA-02625-01

PATIENT
  Age: 82 Year
  Sex: Female

DRUGS (6)
  1. CITALOPRAM HYDROBROMIDE [Suspect]
     Indication: DEPRESSION
     Dosage: 20 MG QD PO
     Route: 048
     Dates: end: 20050222
  2. ANAFRANIL [Concomitant]
  3. VALPROATE SODIUM [Concomitant]
  4. DITROPAN [Concomitant]
  5. TERCIAN (CYAMEMAZINE) [Concomitant]
  6. RISPERDAL [Concomitant]

REACTIONS (7)
  - ANGLE CLOSURE GLAUCOMA [None]
  - CEREBRAL ATROPHY [None]
  - CHOROIDAL DETACHMENT [None]
  - CONFUSIONAL STATE [None]
  - EYE HAEMORRHAGE [None]
  - EYE PAIN [None]
  - HAEMATOMA [None]
